FAERS Safety Report 10950524 (Version 1)
Quarter: 2015Q1

REPORT INFORMATION
  Report Type: Spontaneous
  Country: US (occurrence: None)
  Receive Date: 20150323
  Receipt Date: 20150323
  Transmission Date: 20150721
  Serious: No
  Sender: FDA-Public Use
  Company Number: None

PATIENT
  Age: 36 Year
  Sex: Female
  Weight: 68.04 kg

DRUGS (6)
  1. ADVIL [Concomitant]
     Active Substance: IBUPROFEN
  2. CLARITIN [Concomitant]
     Active Substance: LORATADINE
  3. NASONEX [Suspect]
     Active Substance: MOMETASONE FUROATE
     Indication: NASOPHARYNGITIS
     Dosage: 1-2X DAILY; SPRAY IN NOSE
     Dates: start: 20150319, end: 20150321
  4. MUCINEX [Concomitant]
     Active Substance: GUAIFENESIN
  5. AVIANE [Concomitant]
     Active Substance: ETHINYL ESTRADIOL\LEVONORGESTREL
  6. NASONEX [Suspect]
     Active Substance: MOMETASONE FUROATE
     Indication: RESPIRATORY TRACT CONGESTION
     Dosage: 1-2X DAILY; SPRAY IN NOSE
     Dates: start: 20150319, end: 20150321

REACTIONS (1)
  - Anosmia [None]
